FAERS Safety Report 6899829-X (Version None)
Quarter: 2010Q3

REPORT INFORMATION
  Report Type: 
  Country: None (occurrence: None)
  Receive Date: 20100803
  Receipt Date: 20081216
  Transmission Date: 20110219
  Serious: No
  Sender: FDA-Public Use
  Company Number: US-PFIZER INC-2006142993

PATIENT
  Sex: Female
  Weight: 72.6 kg

DRUGS (6)
  1. LYRICA [Suspect]
     Indication: INTERVERTEBRAL DISC PROTRUSION
     Dosage: 75 MG, 1X/DAY
     Dates: start: 20060101
  2. LYRICA [Suspect]
     Indication: CERVICAL SPINAL STENOSIS
  3. LYRICA [Suspect]
     Indication: LUMBAR SPINAL STENOSIS
  4. MOBIC [Concomitant]
     Indication: ARTHRITIS
  5. XALATAN [Concomitant]
     Indication: GLAUCOMA
  6. XALCOM [Concomitant]
     Indication: GLAUCOMA

REACTIONS (5)
  - DRUG INEFFECTIVE [None]
  - FEELING ABNORMAL [None]
  - MUSCULOSKELETAL PAIN [None]
  - SOMNOLENCE [None]
  - WEIGHT INCREASED [None]
